FAERS Safety Report 12931383 (Version 1)
Quarter: 2016Q4

REPORT INFORMATION
  Report Type: Spontaneous
  Country: PT (occurrence: PT)
  Receive Date: 20161110
  Receipt Date: 20161110
  Transmission Date: 20170207
  Serious: Yes (Death, Other)
  Sender: FDA-Public Use
  Company Number: PT-PFIZER INC-2016520921

PATIENT
  Age: 79 Year
  Sex: Female

DRUGS (1)
  1. LEDERTREXATO [Suspect]
     Active Substance: METHOTREXATE SODIUM
     Indication: RHEUMATOID ARTHRITIS
     Dosage: 1 DF, UNK
     Dates: start: 2005, end: 20160831

REACTIONS (4)
  - Pancytopenia [Fatal]
  - Staphylococcal skin infection [Fatal]
  - Pneumonia [Fatal]
  - Drug interaction [Unknown]

NARRATIVE: CASE EVENT DATE: 20160824
